FAERS Safety Report 5494128-5 (Version None)
Quarter: 2007Q4

REPORT INFORMATION
  Report Type: 
  Country: None (occurrence: None)
  Receive Date: 20071022
  Receipt Date: 20071008
  Transmission Date: 20080405
  Serious: No
  Sender: FDA-Public Use
  Company Number: TPA2007A00095

PATIENT
  Age: 77 Year
  Sex: Female
  Weight: 61.2356 kg

DRUGS (6)
  1. ACTOS [Suspect]
     Indication: TYPE 2 DIABETES MELLITUS
     Dosage: 15 MG, 1 IN 1 D, PER ORAL
     Route: 048
     Dates: start: 20050101, end: 20070101
  2. ACTOS [Suspect]
     Dosage: 15 MG, 1 IN 1 D, PER ORAL
     Route: 048
     Dates: start: 20070829
  3. ACTOS [Suspect]
     Dosage: 30 MG, 1/2 TABLET, PER ORAL
     Route: 048
     Dates: start: 20071004
  4. LORAZEPAM [Concomitant]
  5. ADVIL [Concomitant]
  6. CHOLESTERE RED YEAST RICE(ALL OTHER THERAPEUTIC PRODUCTS) [Concomitant]

REACTIONS (9)
  - BLOOD GLUCOSE INCREASED [None]
  - CONDITION AGGRAVATED [None]
  - DEPRESSION [None]
  - DRUG EFFECT INCREASED [None]
  - DRUG INEFFECTIVE [None]
  - HEART RATE INCREASED [None]
  - INCORRECT DOSE ADMINISTERED [None]
  - NAUSEA [None]
  - VISION BLURRED [None]
